FAERS Safety Report 13246421 (Version 2)
Quarter: 2017Q1

REPORT INFORMATION
  Report Type: Spontaneous
  Country: CH (occurrence: CH)
  Receive Date: 20170217
  Receipt Date: 20170301
  Transmission Date: 20170428
  Serious: Yes (Hospitalization, Disabling, Other)
  Sender: FDA-Public Use
  Company Number: CH-JNJFOC-20170213995

PATIENT
  Age: 43 Year
  Sex: Male

DRUGS (5)
  1. ARTHROTEC [Concomitant]
     Active Substance: DICLOFENAC SODIUM\MISOPROSTOL
     Indication: PSORIATIC ARTHROPATHY
     Route: 048
     Dates: start: 201604, end: 201606
  2. PREDNISONE. [Concomitant]
     Active Substance: PREDNISONE
     Indication: PSORIATIC ARTHROPATHY
     Route: 048
     Dates: start: 20160531, end: 20160616
  3. SIMPONI [Suspect]
     Active Substance: GOLIMUMAB
     Indication: PSORIATIC ARTHROPATHY
     Route: 058
     Dates: start: 20160324, end: 20160621
  4. METHOTREXATE. [Concomitant]
     Active Substance: METHOTREXATE
     Indication: PSORIATIC ARTHROPATHY
     Route: 048
     Dates: start: 2011, end: 20160716
  5. CRESTOR [Concomitant]
     Active Substance: ROSUVASTATIN CALCIUM
     Route: 048
     Dates: start: 2015

REACTIONS (3)
  - Haemorrhagic stroke [Not Recovered/Not Resolved]
  - Hemiplegia [Not Recovered/Not Resolved]
  - Cerebral haemorrhage [Recovered/Resolved with Sequelae]

NARRATIVE: CASE EVENT DATE: 20160716
